FAERS Safety Report 5030263-3 (Version None)
Quarter: 2006Q2

REPORT INFORMATION
  Report Type: 
  Country: None (occurrence: None)
  Receive Date: 20060614
  Receipt Date: 20060530
  Transmission Date: 20061013
  Serious: Yes (Death, Hospitalization)
  Sender: FDA-Public Use
  Company Number: 2006BI008206

PATIENT
  Age: 64 Year
  Sex: Male

DRUGS (2)
  1. ZEVALIN [Suspect]
     Indication: MANTLE CELL LYMPHOMA
     Dosage: 1X; IV
     Route: 042
  2. RITUXIMAB [Concomitant]

REACTIONS (5)
  - CONTUSION [None]
  - FALL [None]
  - MUSCLE HAEMORRHAGE [None]
  - SUBDURAL HAEMATOMA [None]
  - THROMBOCYTOPENIA [None]
